FAERS Safety Report 4506955-9 (Version None)
Quarter: 2004Q4

REPORT INFORMATION
  Report Type: 
  Country: None (occurrence: None)
  Receive Date: 20041025
  Receipt Date: 20040728
  Transmission Date: 20050328
  Serious: Yes (Hospitalization)
  Sender: FDA-Public Use
  Company Number: US-JNJFOC-20040707835

PATIENT
  Age: 26 Year
  Sex: Female
  Weight: 55.7924 kg

DRUGS (10)
  1. INFLIXIMAB (INFLIXIMAB, RECOMBINANT) LYOPHILIZED POWDER [Suspect]
     Indication: CROHN'S DISEASE
     Dosage: 5 MG/KG, INTRAVENOUS; SEE IMAGE
     Route: 042
     Dates: start: 20030624
  2. INFLIXIMAB (INFLIXIMAB, RECOMBINANT) LYOPHILIZED POWDER [Suspect]
     Indication: CROHN'S DISEASE
     Dosage: 5 MG/KG, INTRAVENOUS; SEE IMAGE
     Route: 042
     Dates: start: 20030801
  3. INFLIXIMAB (INFLIXIMAB, RECOMBINANT) LYOPHILIZED POWDER [Suspect]
     Indication: CROHN'S DISEASE
     Dosage: 5 MG/KG, INTRAVENOUS; SEE IMAGE
     Route: 042
     Dates: start: 20031001
  4. INFLIXIMAB (INFLIXIMAB, RECOMBINANT) LYOPHILIZED POWDER [Suspect]
     Indication: CROHN'S DISEASE
     Dosage: 5 MG/KG, INTRAVENOUS; SEE IMAGE
     Route: 042
     Dates: start: 20031201
  5. INFLIXIMAB (INFLIXIMAB, RECOMBINANT) LYOPHILIZED POWDER [Suspect]
     Indication: CROHN'S DISEASE
     Dosage: 5 MG/KG, INTRAVENOUS; SEE IMAGE
     Route: 042
     Dates: start: 20040201
  6. INFLIXIMAB (INFLIXIMAB, RECOMBINANT) LYOPHILIZED POWDER [Suspect]
     Indication: CROHN'S DISEASE
     Dosage: 5 MG/KG, INTRAVENOUS; SEE IMAGE
     Route: 042
     Dates: start: 20040401
  7. INFLIXIMAB (INFLIXIMAB, RECOMBINANT) LYOPHILIZED POWDER [Suspect]
     Indication: CROHN'S DISEASE
     Dosage: 5 MG/KG, INTRAVENOUS; SEE IMAGE
     Route: 042
     Dates: start: 20040404
  8. INFLIXIMAB (INFLIXIMAB, RECOMBINANT) LYOPHILIZED POWDER [Suspect]
     Indication: CROHN'S DISEASE
     Dosage: 5 MG/KG, INTRAVENOUS; SEE IMAGE
     Route: 042
     Dates: start: 20040601
  9. MESALAMINE [Suspect]
     Indication: CROHN'S DISEASE
  10. NARCOTIC ANALGESICS (ANALGESICS) [Suspect]
     Indication: CROHN'S DISEASE

REACTIONS (1)
  - INTESTINAL STENOSIS [None]
